FAERS Safety Report 9737249 (Version 1)
Quarter: 2013Q4

REPORT INFORMATION
  Report Type: Spontaneous
  Country: NL (occurrence: NL)
  Receive Date: 20131206
  Receipt Date: 20131206
  Transmission Date: 20140711
  Serious: Yes (Death, Other)
  Sender: FDA-Public Use
  Company Number: PHHY2013NL141431

PATIENT
  Age: 29 Year
  Sex: Female

DRUGS (4)
  1. VALPROIC ACID [Suspect]
     Indication: CONVULSION
  2. PHENYTOIN [Suspect]
     Indication: CONVULSION
  3. CLOBAZAM [Suspect]
     Indication: CONVULSION
  4. TEMOZOLOMIDE [Concomitant]
     Dates: start: 200805, end: 200806

REACTIONS (4)
  - Death [Fatal]
  - Astrocytoma [Unknown]
  - Disease recurrence [Unknown]
  - Exposure during pregnancy [Unknown]
